FAERS Safety Report 11508801 (Version 1)
Quarter: 2015Q3

REPORT INFORMATION
  Report Type: Spontaneous
  Country: US (occurrence: None)
  Receive Date: 20150915
  Receipt Date: 20150915
  Transmission Date: 20151125
  Serious: Yes (Other)
  Sender: FDA-Public Use
  Company Number: US-MDT-ADR-2015-01780

PATIENT
  Sex: Female

DRUGS (1)
  1. BACLOFEN INTRATHECAL [Suspect]
     Active Substance: BACLOFEN
     Dosage: UNK

REACTIONS (7)
  - Medical device site discharge [None]
  - Seizure [None]
  - Amnesia [None]
  - Staphylococcal infection [None]
  - Implant site infection [None]
  - Pyrexia [None]
  - Medical device site erythema [None]
